FAERS Safety Report 25014980 (Version 4)
Quarter: 2025Q3

REPORT INFORMATION
  Report Type: Spontaneous
  Country: EU (occurrence: EU)
  Receive Date: 20250226
  Receipt Date: 20250918
  Transmission Date: 20251021
  Serious: Yes (Other)
  Sender: PFIZER
  Company Number: EU-PFIZER INC-PV202500022411

PATIENT
  Age: 42 Year
  Sex: Male

DRUGS (8)
  1. METHOTREXATE SODIUM [Suspect]
     Active Substance: METHOTREXATE SODIUM
  2. METHOTREXATE SODIUM [Suspect]
     Active Substance: METHOTREXATE SODIUM
     Route: 048
  3. FOLIC ACID [Concomitant]
     Active Substance: FOLIC ACID
     Dosage: 5 MG, WEEKLY
  4. HYDROXYCHLOROQUINE [Concomitant]
     Active Substance: HYDROXYCHLOROQUINE
  5. PREDNISOLONE [Concomitant]
     Active Substance: PREDNISOLONE
  6. ASPIRIN [Concomitant]
     Active Substance: ASPIRIN
  7. CYCLOSPORINE [Concomitant]
     Active Substance: CYCLOSPORINE
  8. CYCLOSPORINE [Concomitant]
     Active Substance: CYCLOSPORINE
     Route: 048

REACTIONS (2)
  - Systemic lupus erythematosus [Unknown]
  - Disease recurrence [Unknown]
